FAERS Safety Report 15302166 (Version 1)
Quarter: 2018Q3

REPORT INFORMATION
  Report Type: Spontaneous
  Country: US (occurrence: US)
  Receive Date: 20180821
  Receipt Date: 20180821
  Transmission Date: 20181010
  Serious: No
  Sender: FDA-Public Use
  Company Number: US-TARO-2017TAR01096

PATIENT
  Sex: Female

DRUGS (2)
  1. IRON [Suspect]
     Active Substance: IRON
     Indication: MICROCYTIC ANAEMIA
     Dosage: UNK
  2. WARFARIN SODIUM TABLETS USP 5MG [Suspect]
     Active Substance: WARFARIN SODIUM
     Dosage: UNK

REACTIONS (2)
  - Dyspepsia [Not Recovered/Not Resolved]
  - Drug interaction [Unknown]
